FAERS Safety Report 8125920-6 (Version None)
Quarter: 2012Q1

REPORT INFORMATION
  Report Type: 
  Country: None (occurrence: None)
  Receive Date: 20120209
  Receipt Date: 20120201
  Transmission Date: 20120608
  Serious: Yes (Hospitalization)
  Sender: FDA-Public Use
  Company Number: US-BAXTER-2012BH001614

PATIENT
  Age: 77 Year
  Sex: Male

DRUGS (2)
  1. DIANEAL [Suspect]
     Indication: PERITONEAL DIALYSIS
     Route: 033
     Dates: start: 20111214
  2. DIANEAL [Suspect]
     Route: 033
     Dates: start: 20111214

REACTIONS (5)
  - NAUSEA [None]
  - OSTEOARTHRITIS [None]
  - ARTHRALGIA [None]
  - CONSTIPATION [None]
  - VOMITING [None]
